FAERS Safety Report 9478651 (Version 1)
Quarter: 2013Q3

REPORT INFORMATION
  Report Type: Report from Study
  Country: DE (occurrence: DE)
  Receive Date: 20130827
  Receipt Date: 20130827
  Transmission Date: 20140515
  Serious: Yes (Hospitalization)
  Sender: FDA-Public Use
  Company Number: DE-ABBOTT-13P-062-1138593-00

PATIENT
  Sex: Female

DRUGS (3)
  1. HUMIRA [Suspect]
     Indication: RHEUMATOID ARTHRITIS
     Route: 058
     Dates: start: 20090909, end: 20130316
  2. TILIDIN [Concomitant]
     Indication: RHEUMATOID ARTHRITIS
  3. DRUG FOR THYROID DISORDER [Concomitant]
     Indication: THYROID DISORDER

REACTIONS (1)
  - Cardiac disorder [Not Recovered/Not Resolved]
